FAERS Safety Report 9646171 (Version 2)
Quarter: 2013Q4

REPORT INFORMATION
  Report Type: Report from Study
  Country: US (occurrence: US)
  Receive Date: 20131025
  Receipt Date: 20131025
  Transmission Date: 20140711
  Serious: Yes (Other)
  Sender: FDA-Public Use
  Company Number: US-ABBVIE-13P-163-1130104-00

PATIENT
  Sex: Female
  Weight: 72.19 kg

DRUGS (8)
  1. HUMIRA [Suspect]
     Indication: RHEUMATOID ARTHRITIS
     Dates: start: 1999
  2. HUMIRA [Suspect]
     Dates: start: 2012, end: 20130401
  3. HUMIRA [Suspect]
     Dates: start: 20130801
  4. METHOTREXATE [Concomitant]
     Indication: PRODUCT USED FOR UNKNOWN INDICATION
  5. FOLIC ACID [Concomitant]
     Indication: PRODUCT USED FOR UNKNOWN INDICATION
  6. BARIATRIC MULTI-VITAMIN [Concomitant]
     Indication: PRODUCT USED FOR UNKNOWN INDICATION
  7. PREDNISONE [Concomitant]
     Indication: PRODUCT USED FOR UNKNOWN INDICATION
  8. LORTAB [Concomitant]
     Indication: PRODUCT USED FOR UNKNOWN INDICATION

REACTIONS (6)
  - Tendon injury [Recovered/Resolved]
  - Breast calcifications [Unknown]
  - Incorrect dose administered [Unknown]
  - Injection site bruising [Unknown]
  - Drug ineffective [Unknown]
  - Injection site pain [Unknown]
